FAERS Safety Report 17345714 (Version 1)
Quarter: 2020Q1

REPORT INFORMATION
  Report Type: Spontaneous
  Country: JP (occurrence: JP)
  Receive Date: 20200129
  Receipt Date: 20200129
  Transmission Date: 20200409
  Serious: Yes (Other)
  Sender: FDA-Public Use
  Company Number: NVSC2020JP021558

PATIENT
  Age: 70 Year
  Sex: Male

DRUGS (4)
  1. ARGATROBAN. [Suspect]
     Active Substance: ARGATROBAN
     Indication: CORONARY ANGIOPLASTY
  2. HEPARIN [Suspect]
     Active Substance: HEPARIN SODIUM
     Indication: ANGIOPLASTY
     Dosage: UNK
     Route: 065
  3. ARGATROBAN. [Suspect]
     Active Substance: ARGATROBAN
     Indication: ANGIOPLASTY
     Dosage: 10 MG
     Route: 041
  4. ARGATROBAN. [Suspect]
     Active Substance: ARGATROBAN
     Indication: HEPARIN-INDUCED THROMBOCYTOPENIA

REACTIONS (2)
  - Coronary artery thrombosis [Recovered/Resolved]
  - Incorrect product administration duration [Unknown]
